FAERS Safety Report 7044967-4 (Version None)
Quarter: 2010Q4

REPORT INFORMATION
  Report Type: 
  Country: None (occurrence: None)
  Receive Date: 20101014
  Receipt Date: 20101011
  Transmission Date: 20110411
  Serious: Yes (Hospitalization, Other)
  Sender: FDA-Public Use
  Company Number: FR-BRISTOL-MYERS SQUIBB COMPANY-14922876

PATIENT
  Age: 63 Year
  Sex: Female

DRUGS (8)
  1. COUMADIN [Suspect]
     Dates: end: 20091201
  2. KARDEGIC [Suspect]
     Dates: end: 20091201
  3. CORDARONE [Concomitant]
  4. CARDENSIEL [Concomitant]
  5. CRESTOR [Concomitant]
  6. NEXIUM [Concomitant]
  7. ACETAMINOPHEN [Concomitant]
  8. HEMIGOXINE NATIVELLE [Concomitant]

REACTIONS (5)
  - ANAEMIA [None]
  - HAEMATEMESIS [None]
  - INTERNATIONAL NORMALISED RATIO INCREASED [None]
  - LUNG CANCER METASTATIC [None]
  - MELAENA [None]
